FAERS Safety Report 4788882-5 (Version None)
Quarter: 2005Q4

REPORT INFORMATION
  Report Type: 
  Country: None (occurrence: None)
  Receive Date: 20051004
  Receipt Date: 20050921
  Transmission Date: 20060501
  Serious: Yes (Disabling)
  Sender: FDA-Public Use
  Company Number: SUSI-2005-00720

PATIENT
  Age: 44 Year
  Sex: Female

DRUGS (8)
  1. PENTASA [Suspect]
     Indication: COLITIS ULCERATIVE
     Dosage: ORAL
     Route: 048
     Dates: start: 19940101, end: 19940101
  2. IMURAN [Suspect]
     Indication: COLITIS ULCERATIVE
     Dosage: 125 MG, DAILY, ORAL
     Route: 048
     Dates: start: 20040701, end: 20050701
  3. IMURAN [Suspect]
     Indication: COLITIS ULCERATIVE
     Dosage: 125 MG, DAILY, ORAL
     Route: 048
     Dates: start: 20010615
  4. PREDNISONE [Suspect]
     Indication: COLITIS ULCERATIVE
     Dosage: ORAL
     Route: 048
     Dates: start: 20040101, end: 20041001
  5. PREDNISONE [Suspect]
     Indication: COLITIS ULCERATIVE
     Dosage: ORAL
     Route: 048
     Dates: start: 19950615
  6. PREDNISONE [Suspect]
     Indication: COLITIS ULCERATIVE
     Dosage: ORAL
     Route: 048
     Dates: start: 20050101
  7. RISEDRONATE SODIUM (RISEDRONATE SODIUM) [Concomitant]
  8. CORTICOSTEROID NOS (CORTICOSTEROID NOS) [Concomitant]

REACTIONS (7)
  - ALOPECIA [None]
  - ANTINEUTROPHIL CYTOPLASMIC ANTIBODY POSITIVE [None]
  - COLITIS ULCERATIVE [None]
  - DRUG INEFFECTIVE [None]
  - INTERSTITIAL LUNG DISEASE [None]
  - PULMONARY FUNCTION TEST ABNORMAL [None]
  - PULMONARY GRANULOMA [None]
